FAERS Safety Report 10715875 (Version 1)
Quarter: 2015Q1

REPORT INFORMATION
  Report Type: Spontaneous
  Country: IT (occurrence: IT)
  Receive Date: 20150116
  Receipt Date: 20150116
  Transmission Date: 20150721
  Serious: Yes (Hospitalization)
  Sender: FDA-Public Use
  Company Number: IT-BAYER-2015-005454

PATIENT
  Age: 56 Year
  Sex: Female

DRUGS (9)
  1. CIPROXIN 500 MG FILM-COATED TABLETS [Suspect]
     Active Substance: CIPROFLOXACIN
     Dosage: DAILY DOSE 1000 MG
     Route: 048
     Dates: start: 20150102, end: 20150109
  2. DEPAKIN [Concomitant]
     Active Substance: VALPROATE SODIUM
     Dosage: UNK
  3. ENAPREN [Concomitant]
     Active Substance: ENALAPRIL MALEATE
     Dosage: UNK
  4. SEROQUEL [Concomitant]
     Active Substance: QUETIAPINE FUMARATE
     Dosage: UNK
  5. TAVOR [LORAZEPAM] [Concomitant]
     Active Substance: LORAZEPAM
     Dosage: UNK
  6. SPIRIVA [Concomitant]
     Active Substance: TIOTROPIUM BROMIDE MONOHYDRATE
     Dosage: UNK
  7. FELISON [Concomitant]
     Active Substance: FLURAZEPAM MONOHYDROCHLORIDE
     Dosage: UNK
  8. CARDIOASPIRIN [Concomitant]
     Active Substance: ASPIRIN
     Dosage: UNK
  9. ALIFLUS [Concomitant]
     Active Substance: FLUTICASONE PROPIONATE\SALMETEROL XINAFOATE
     Dosage: UNK

REACTIONS (2)
  - Chronic obstructive pulmonary disease [Recovering/Resolving]
  - Drug ineffective [Recovering/Resolving]

NARRATIVE: CASE EVENT DATE: 20150109
